FAERS Safety Report 5867875-0 (Version None)
Quarter: 2008Q3

REPORT INFORMATION
  Report Type: 
  Country: None (occurrence: None)
  Receive Date: 20080902
  Receipt Date: 20080821
  Transmission Date: 20090109
  Serious: No
  Sender: FDA-Public Use
  Company Number: US-BOEHRINGER INGELHEIM GMBH, GERMANY-2008-BP-13578BP

PATIENT
  Sex: Female

DRUGS (7)
  1. SPIRIVA [Suspect]
     Indication: CHRONIC OBSTRUCTIVE PULMONARY DISEASE
     Route: 055
     Dates: start: 20080101
  2. PERCOCET [Concomitant]
     Indication: BACK PAIN
     Dosage: 10/650; 4 TIMES DAILY
     Dates: start: 20040101
  3. SYMBICORT [Concomitant]
     Indication: CHRONIC OBSTRUCTIVE PULMONARY DISEASE
     Dates: start: 20080101
  4. OXYCONTIN [Concomitant]
     Indication: BACK PAIN
     Dates: start: 20040101
  5. TYLENOL W/ CODEINE NO. 3 [Concomitant]
     Indication: BACK PAIN
     Dates: start: 20040101
  6. DOXEPIN HCL [Concomitant]
     Indication: INSOMNIA
  7. REMERON [Concomitant]
     Indication: INCREASED APPETITE

REACTIONS (1)
  - CONSTIPATION [None]
